FAERS Safety Report 9960699 (Version 1)
Quarter: 2014Q1

REPORT INFORMATION
  Report Type: Spontaneous
  Country: US (occurrence: US)
  Receive Date: 20140305
  Receipt Date: 20140305
  Transmission Date: 20141002
  Serious: No
  Sender: FDA-Public Use
  Company Number: US-ABBVIE-13P-163-1108349-00

PATIENT
  Age: 49 Year
  Sex: Male
  Weight: 88.98 kg

DRUGS (6)
  1. HUMIRA [Suspect]
     Indication: COLITIS ULCERATIVE
     Dates: start: 201209, end: 201209
  2. HUMIRA [Suspect]
     Dates: start: 2012, end: 2012
  3. HUMIRA [Suspect]
     Dates: start: 2012, end: 201305
  4. HUMIRA [Suspect]
     Dates: start: 201305, end: 201305
  5. HUMIRA [Suspect]
     Dates: start: 201305, end: 201305
  6. HUMIRA [Suspect]
     Dates: start: 201306

REACTIONS (3)
  - Mucous stools [Recovered/Resolved]
  - Colitis ulcerative [Recovered/Resolved]
  - Haematochezia [Recovered/Resolved]
